FAERS Safety Report 11198931 (Version 2)
Quarter: 2015Q2

REPORT INFORMATION
  Report Type: Report from Study
  Country: JP (occurrence: JP)
  Receive Date: 20150618
  Receipt Date: 20150619
  Transmission Date: 20150821
  Serious: Yes (Death, Life-Threatening, Hospitalization)
  Sender: FDA-Public Use
  Company Number: JP-PFIZER INC-2015114385

PATIENT
  Age: 55 Year
  Sex: Male
  Weight: 69.3 kg

DRUGS (12)
  1. TYGACIL [Suspect]
     Active Substance: TIGECYCLINE
     Indication: SEPSIS
     Dosage: 100 MG, 1X/DAY (60 MIN INFUSION)
     Route: 041
     Dates: start: 20140623, end: 20140623
  2. TYGACIL [Suspect]
     Active Substance: TIGECYCLINE
     Dosage: 50 MG, 2X/DAY EVERY 12 HRS, 60 MIN INFUSION
     Route: 041
     Dates: start: 20140626, end: 20140714
  3. GRAN [Concomitant]
     Active Substance: FILGRASTIM
     Dosage: UNK
     Route: 042
  4. DIPRIVAN [Concomitant]
     Active Substance: PROPOFOL
     Dosage: UNK
     Route: 042
  5. ORGARAN [Concomitant]
     Active Substance: DANAPAROID SODIUM
     Dosage: UNK
     Route: 042
  6. PROGRAF [Concomitant]
     Active Substance: TACROLIMUS\TACROLIMUS ANHYDROUS
     Dosage: UNK
     Route: 042
  7. HANP [Concomitant]
     Active Substance: CARPERITIDE
     Dosage: UNK
     Route: 042
  8. INOVAN [Concomitant]
     Active Substance: DOPAMINE HYDROCHLORIDE
     Dosage: UNK
     Route: 042
  9. CUBICIN [Concomitant]
     Active Substance: DAPTOMYCIN
     Dosage: UNK
     Route: 042
  10. MEROPEN [Concomitant]
     Active Substance: MEROPENEM
     Dosage: UNK
     Route: 042
  11. ANCARON [Concomitant]
     Active Substance: AMIODARONE HYDROCHLORIDE
     Dosage: UNK
     Route: 042
  12. TYGACIL [Suspect]
     Active Substance: TIGECYCLINE
     Dosage: 50 MG, 2X/DAY EVERY 12 HRS, 60 MIN INFUSION
     Route: 041
     Dates: start: 20140624, end: 20140624

REACTIONS (5)
  - Renal disorder [Not Recovered/Not Resolved]
  - Drug ineffective [Unknown]
  - Septic shock [Fatal]
  - Hepatobiliary disease [Not Recovered/Not Resolved]
  - Thrombocytopenia [Not Recovered/Not Resolved]

NARRATIVE: CASE EVENT DATE: 20140624
